FAERS Safety Report 21166316 (Version 1)
Quarter: 2022Q3

REPORT INFORMATION
  Report Type: Spontaneous
  Country: US (occurrence: US)
  Receive Date: 20220803
  Receipt Date: 20220803
  Transmission Date: 20221026
  Serious: No
  Sender: FDA-Public Use
  Company Number: US-PFIZER INC-202201026031

PATIENT
  Age: 74 Year
  Sex: Male
  Weight: 84.37 kg

DRUGS (3)
  1. PAXLOVID [Suspect]
     Active Substance: NIRMATRELVIR\RITONAVIR
     Indication: COVID-19 treatment
     Dosage: UNK
     Dates: start: 20220729
  2. METOPROLOL [Concomitant]
     Active Substance: METOPROLOL
     Indication: Blood cholesterol
     Dosage: UNK
  3. ASPIRIN [Concomitant]
     Active Substance: ASPIRIN
     Indication: Coronary artery disease
     Dosage: UNK

REACTIONS (2)
  - Intentional dose omission [Unknown]
  - Insomnia [Unknown]
